FAERS Safety Report 16879827 (Version 2)
Quarter: 2019Q4

REPORT INFORMATION
  Report Type: Spontaneous
  Country: JP (occurrence: JP)
  Receive Date: 20191003
  Receipt Date: 20191030
  Transmission Date: 20200122
  Serious: Yes (Life-Threatening, Hospitalization, Other)
  Sender: FDA-Public Use
  Company Number: JP-PFIZER INC-2019418091

PATIENT
  Age: 82 Year
  Sex: Male
  Weight: 65 kg

DRUGS (17)
  1. LORA-PITA 2MG [Suspect]
     Active Substance: LORAZEPAM
     Indication: STATUS EPILEPTICUS
     Dosage: 4 MG, 1X/DAY
     Route: 042
     Dates: start: 20190920
  2. AZILVA [Concomitant]
     Active Substance: AZILSARTAN KAMEDOXOMIL
     Dosage: 20 MG, 1X/DAY (AFTER BREAKFAST)
     Route: 048
     Dates: start: 20190828
  3. FEBURIC [Concomitant]
     Active Substance: FEBUXOSTAT
     Dosage: 10 MG, 1X/DAY AFTER BREAKFAST
     Route: 048
     Dates: start: 20190828
  4. ZACRAS COMBINATION [Concomitant]
     Active Substance: AMLODIPINE BESYLATE\AZILSARTAN
     Dosage: UNK, 1X/DAY
     Route: 048
  5. ROSUVASTATIN SAWAI [Concomitant]
     Dosage: 5 MG, 1X/DAY (AFTER BREAKFAST)
     Route: 048
     Dates: start: 20190828
  6. MAGMITT [Concomitant]
     Active Substance: MAGNESIUM OXIDE
     Dosage: 330 MG, 3X/DAY (EVERY AFTER MEALS)
     Route: 048
     Dates: start: 20190828
  7. BAYASPIRIN [Concomitant]
     Active Substance: ASPIRIN
     Dosage: 100 MG, 1X/DAY DAY (AFTER BREAKFAST)
     Route: 048
     Dates: start: 20190828
  8. YD SOLITA T NO.1 [Concomitant]
     Dosage: 200 ML, 1X/DAY
     Route: 042
     Dates: start: 20190920
  9. LORA-PITA 2MG [Suspect]
     Active Substance: LORAZEPAM
     Indication: STATUS EPILEPTICUS
  10. LASIX [Concomitant]
     Active Substance: FUROSEMIDE
     Dosage: 20 MG, 1X/DAY (AFTER BREAKFAST)
     Route: 048
     Dates: start: 20190828
  11. ADJUST-A [Concomitant]
     Active Substance: SENNA LEAF\SENNOSIDES\SENNOSIDES A AND B
     Dosage: 80 MG, 1X/DAY BEFORE BEDTIME
     Route: 048
     Dates: start: 20190828
  12. DEPAKENE-R [Concomitant]
     Active Substance: VALPROATE SODIUM
     Dosage: 400 MG, 1X/DAY AFTER BREAKFAST
     Dates: start: 20190828
  13. NOVORAPID [Concomitant]
     Active Substance: INSULIN ASPART
     Dosage: 5 IU, 3X/DAY
     Route: 058
     Dates: start: 20190828
  14. AMLODIPINE [Concomitant]
     Active Substance: AMLODIPINE BESYLATE
     Dosage: 5 MG, 1X/DAY (IN THE MORNING)
     Route: 048
     Dates: start: 20190828
  15. LANSOPRAZOLE. [Concomitant]
     Active Substance: LANSOPRAZOLE
     Dosage: 15 MG, 1X/DAY AFTER BREAKFAST
     Route: 048
     Dates: start: 20190828
  16. LIMAPROST ALFADEX [Concomitant]
     Active Substance: LIMAPROST
     Dosage: 5 UG, 3X/DAY EVERY AFTER MEALS
     Route: 048
     Dates: start: 20190828
  17. TRESIBA [Concomitant]
     Active Substance: INSULIN DEGLUDEC
     Dosage: 10 IU, 1X/DAY (BEFORE BEDTIME SELF-DOSE-ADJUSTING DEPENDING ON BLOOD GLUCOSE LEVEL)
     Route: 058
     Dates: start: 20190828

REACTIONS (6)
  - Cardiac arrest [Recovered/Resolved]
  - Respiratory depression [Recovering/Resolving]
  - Conduction disorder [Unknown]
  - Sinus node dysfunction [Recovering/Resolving]
  - Blood pressure decreased [Unknown]
  - Bradycardia [Unknown]

NARRATIVE: CASE EVENT DATE: 20190920
